FAERS Safety Report 15691414 (Version 1)
Quarter: 2018Q4

REPORT INFORMATION
  Report Type: Spontaneous
  Country: NO (occurrence: NO)
  Receive Date: 20181205
  Receipt Date: 20181205
  Transmission Date: 20190205
  Serious: Yes (Hospitalization)
  Sender: FDA-Public Use
  Company Number: NO-MYLANLABS-2018M1088068

PATIENT
  Age: 76 Year
  Sex: Male

DRUGS (2)
  1. RIFAMPICIN [Concomitant]
     Active Substance: RIFAMPIN
     Indication: ARTHRITIS INFECTIVE
     Route: 065
  2. CIPROFLOXACIN. [Suspect]
     Active Substance: CIPROFLOXACIN
     Indication: ARTHRITIS INFECTIVE
     Route: 048

REACTIONS (1)
  - Aortic valve prolapse [Recovered/Resolved with Sequelae]
